FAERS Safety Report 14948932 (Version 1)
Quarter: 2018Q2

REPORT INFORMATION
  Report Type: Spontaneous
  Country: US (occurrence: US)
  Receive Date: 20180508
  Receipt Date: 20180508
  Transmission Date: 20180711
  Serious: Yes (Life-Threatening, Hospitalization, Disabling)
  Sender: FDA-Public Use
  Company Number: None

PATIENT
  Age: 84 Year
  Sex: Female
  Weight: 57.6 kg

DRUGS (5)
  1. LOPRESSOR [Concomitant]
     Active Substance: METOPROLOL TARTRATE
     Dates: start: 20180508, end: 20180508
  2. HEPARIN [Suspect]
     Active Substance: HEPARIN SODIUM
     Indication: DEEP VEIN THROMBOSIS
     Route: 058
     Dates: start: 20180506, end: 20180508
  3. HYDRALAZINE [Concomitant]
     Active Substance: HYDRALAZINE HYDROCHLORIDE
     Dates: start: 20180508, end: 20180508
  4. QUETIAPINE. [Concomitant]
     Active Substance: QUETIAPINE
     Dates: start: 20180506, end: 20180508
  5. HEPARIN [Suspect]
     Active Substance: HEPARIN SODIUM
     Indication: PROPHYLAXIS
     Route: 058
     Dates: start: 20180506, end: 20180508

REACTIONS (2)
  - Cerebrovascular accident [None]
  - Unresponsive to stimuli [None]

NARRATIVE: CASE EVENT DATE: 20180508
